FAERS Safety Report 6752756-0 (Version None)
Quarter: 2010Q2

REPORT INFORMATION
  Report Type: 
  Country: None (occurrence: None)
  Receive Date: 20100528
  Receipt Date: 20100513
  Transmission Date: 20101027
  Serious: Yes (Other)
  Sender: FDA-Public Use
  Company Number: 2010-00530

PATIENT
  Age: 75 Year
  Sex: Male

DRUGS (4)
  1. RAMIPRIL [Suspect]
     Indication: HYPERTENSION
     Dosage: 10 MG
     Dates: start: 20071001, end: 20080401
  2. IBUPROFEN [Concomitant]
  3. PENICILLIN [Concomitant]
  4. AMOXICILLIN [Concomitant]

REACTIONS (1)
  - RENAL FAILURE CHRONIC [None]
